FAERS Safety Report 11704940 (Version 2)
Quarter: 2016Q1

REPORT INFORMATION
  Report Type: Report from Study
  Country: AR (occurrence: AR)
  Receive Date: 20151106
  Receipt Date: 20160331
  Transmission Date: 20160525
  Serious: Yes (Other)
  Sender: FDA-Public Use
  Company Number: PHHY2015AR135297

PATIENT
  Sex: Male

DRUGS (2)
  1. ULTIBRO BREEZHALER [Suspect]
     Active Substance: GLYCOPYRRONIUM\INDACATEROL
     Indication: CHRONIC OBSTRUCTIVE PULMONARY DISEASE
     Dosage: 1 DF, QD
     Route: 065
  2. ULTIBRO BREEZHALER [Suspect]
     Active Substance: GLYCOPYRRONIUM\INDACATEROL
     Dosage: 1 DF, QD
     Route: 065
     Dates: start: 20160328

REACTIONS (7)
  - Cough [Recovering/Resolving]
  - Malaise [Recovering/Resolving]
  - Drug ineffective [Recovering/Resolving]
  - Agitation [Recovering/Resolving]
  - Bronchitis [Recovered/Resolved]
  - Dyspnoea [Recovering/Resolving]
  - Influenza [Recovering/Resolving]
